FAERS Safety Report 9919186 (Version 1)
Quarter: 2014Q1

REPORT INFORMATION
  Report Type: Spontaneous
  Country: US (occurrence: US)
  Receive Date: 20140224
  Receipt Date: 20140224
  Transmission Date: 20141002
  Serious: No
  Sender: FDA-Public Use
  Company Number: US-009507513-1402USA000217

PATIENT
  Sex: Female

DRUGS (1)
  1. COSOPT PF [Suspect]
     Dosage: UNK; 2%-5% DROPS
     Route: 047

REACTIONS (9)
  - Abnormal sensation in eye [Unknown]
  - Eye pain [Unknown]
  - Eye irritation [Unknown]
  - Eye irritation [Unknown]
  - Eye pruritus [Unknown]
  - Accidental exposure to product [Unknown]
  - Incorrect dose administered [Unknown]
  - Product dropper issue [Unknown]
  - Product quality issue [Unknown]
